FAERS Safety Report 6683427-7 (Version None)
Quarter: 2010Q2

REPORT INFORMATION
  Report Type: 
  Country: None (occurrence: None)
  Receive Date: 20100415
  Receipt Date: 20100401
  Transmission Date: 20101027
  Serious: Yes (Other)
  Sender: FDA-Public Use
  Company Number: US-ELI_LILLY_AND_COMPANY-US201004002146

PATIENT
  Sex: Female

DRUGS (12)
  1. FORTEO [Suspect]
     Indication: OSTEOPOROSIS
     Dosage: 20 UG, DAILY (1/D)
     Dates: start: 20090101, end: 20090701
  2. FORTEO [Suspect]
     Dosage: 20 UG, DAILY (1/D)
     Dates: start: 20090101
  3. VICODIN [Concomitant]
  4. COUMADIN [Concomitant]
  5. SIMVASTATIN [Concomitant]
     Dosage: 40 MG, UNK
  6. SOTALOL HCL [Concomitant]
  7. MIRTAZAPINE [Concomitant]
     Dosage: 50 MG, UNK
  8. MULTI-VITAMIN [Concomitant]
  9. FLAXSEED OIL [Concomitant]
  10. FISH OIL [Concomitant]
  11. CALCIUM                                 /N/A/ [Concomitant]
  12. VITAMIN C                          /00008001/ [Concomitant]

REACTIONS (4)
  - BACK PAIN [None]
  - BREAST CANCER [None]
  - MALAISE [None]
  - SLEEP DISORDER [None]
